FAERS Safety Report 5355737-7 (Version None)
Quarter: 2007Q2

REPORT INFORMATION
  Report Type: 
  Country: None (occurrence: None)
  Receive Date: 20070611
  Receipt Date: 20070611
  Transmission Date: 20071010
  Serious: Yes (Hospitalization, Other)
  Sender: FDA-Public Use
  Company Number: None

PATIENT
  Age: 56 Year
  Sex: Female
  Weight: 78.0187 kg

DRUGS (1)
  1. AVELOX [Suspect]
     Indication: ARTHROPOD BITE
     Dosage: ONE DAILY PO
     Route: 048
     Dates: start: 20070509, end: 20070603

REACTIONS (4)
  - APPARENT LIFE THREATENING EVENT [None]
  - HEPATIC ENZYME INCREASED [None]
  - NAUSEA [None]
  - PYREXIA [None]
